FAERS Safety Report 5372886-8 (Version None)
Quarter: 2007Q2

REPORT INFORMATION
  Report Type: 
  Country: None (occurrence: None)
  Receive Date: 20070621
  Receipt Date: 20070411
  Transmission Date: 20071010
  Serious: No
  Sender: FDA-Public Use
  Company Number: US-CVT-070085

PATIENT
  Age: 54 Year
  Sex: Male
  Weight: 83.4 kg

DRUGS (9)
  1. RANEXA [Suspect]
     Indication: ANGINA PECTORIS
     Dosage: 500 MG, BID, ORAL
     Route: 048
     Dates: start: 20070120, end: 20070207
  2. ZOCOR [Concomitant]
  3. ALTACE [Concomitant]
  4. ASPIRIN [Concomitant]
  5. COREG [Concomitant]
  6. NEXIUM [Concomitant]
  7. NITROGLYCERIN [Concomitant]
  8. NITRO (GLYCERYL TRINITRATE) [Concomitant]
  9. PLAVIX [Concomitant]

REACTIONS (1)
  - SKIN EXFOLIATION [None]
